FAERS Safety Report 8169655-2 (Version None)
Quarter: 2012Q1

REPORT INFORMATION
  Report Type: 
  Country: None (occurrence: None)
  Receive Date: 20120228
  Receipt Date: 20120222
  Transmission Date: 20120608
  Serious: No
  Sender: FDA-Public Use
  Company Number: US-PFIZER INC-2012047324

PATIENT
  Age: 77 Year
  Sex: Male
  Weight: 72.562 kg

DRUGS (12)
  1. NIFEDIPINE [Suspect]
     Indication: HYPERTENSION
     Dosage: 30 MG, DAILY (IN NIGHT)
     Dates: start: 20120219
  2. HYDROCHLOROTHIAZIDE [Concomitant]
     Dosage: 25 MG, UNK
  3. ACETYLSALICYLIC ACID [Concomitant]
     Dosage: 81 MG, UNK
  4. POTASSIUM [Concomitant]
     Indication: SUPPLEMENTATION THERAPY
     Dosage: UNK
  5. LEVOTHYROXINE [Concomitant]
     Indication: THYROID DISORDER
     Dosage: 100 UG, UNK
  6. TAMSULOSIN [Concomitant]
     Indication: PROSTATIC DISORDER
     Dosage: UNK
  7. LIPITOR [Concomitant]
     Dosage: UNK
  8. PROCARDIA XL [Suspect]
     Indication: HYPERTENSION
     Dosage: 60MG IN THE MORNING AND 30MG IN THE NIGHT
  9. PROCARDIA XL [Suspect]
     Dosage: 60 MG, DAILY (IN MORNING)
  10. WARFARIN [Concomitant]
     Indication: ANTICOAGULANT THERAPY
     Dosage: UNK
  11. PANTOPRAZOLE SODIUM [Concomitant]
     Indication: GASTRIC DISORDER
     Dosage: 40 MG, UNK
  12. SOTALOL [Concomitant]
     Indication: CARDIAC DISORDER
     Dosage: 80 MG, 2X/DAY

REACTIONS (2)
  - DRUG INEFFECTIVE [None]
  - BLOOD PRESSURE FLUCTUATION [None]
